FAERS Safety Report 8543576-5 (Version None)
Quarter: 2012Q3

REPORT INFORMATION
  Report Type: 
  Country: None (occurrence: None)
  Receive Date: 20120719
  Receipt Date: 20120719
  Transmission Date: 20120928
  Serious: No
  Sender: FDA-Public Use
  Company Number: None

PATIENT
  Age: 61 Year
  Sex: Male
  Weight: 122.0176 kg

DRUGS (1)
  1. BYSTOLIC [Suspect]
     Dosage: 20 MG 1 A DAY
     Dates: start: 20111201

REACTIONS (2)
  - PAIN IN EXTREMITY [None]
  - ABASIA [None]
